FAERS Safety Report 5482652-0 (Version None)
Quarter: 2007Q4

REPORT INFORMATION
  Report Type: 
  Country: None (occurrence: None)
  Receive Date: 20071011
  Receipt Date: 20071002
  Transmission Date: 20080405
  Serious: Yes (Other)
  Sender: FDA-Public Use
  Company Number: US-WYE-H00491407

PATIENT
  Age: 46 Year
  Sex: Male
  Weight: 97.7 kg

DRUGS (2)
  1. TORISEL [Suspect]
     Indication: RENAL CELL CARCINOMA STAGE UNSPECIFIED
     Route: 042
     Dates: start: 20070830, end: 20070830
  2. TORISEL [Suspect]
     Route: 042
     Dates: start: 20070906, end: 20070906

REACTIONS (5)
  - DYSPEPSIA [None]
  - EYE MOVEMENT DISORDER [None]
  - FLUSHING [None]
  - NAUSEA [None]
  - SKIN DISCOLOURATION [None]
